FAERS Safety Report 5353496-5 (Version None)
Quarter: 2007Q2

REPORT INFORMATION
  Report Type: 
  Country: None (occurrence: None)
  Receive Date: 20070608
  Receipt Date: 20070529
  Transmission Date: 20071010
  Serious: Yes (Death)
  Sender: FDA-Public Use
  Company Number: 2007JP002450

PATIENT
  Age: 59 Year
  Sex: Female
  Weight: 49 kg

DRUGS (1)
  1. PROGRAF [Suspect]
     Indication: RHEUMATOID ARTHRITIS
     Dosage: 0.5 MG, TID, ORAL
     Route: 048
     Dates: start: 20060312, end: 20070219

REACTIONS (6)
  - AORTIC DISSECTION [None]
  - AORTIC RUPTURE [None]
  - BLOOD PRESSURE IMMEASURABLE [None]
  - BRADYCARDIA [None]
  - LOSS OF CONSCIOUSNESS [None]
  - RESUSCITATION [None]
